FAERS Safety Report 6166050-2 (Version None)
Quarter: 2009Q2

REPORT INFORMATION
  Report Type: 
  Country: None (occurrence: None)
  Receive Date: 20090424
  Receipt Date: 20090422
  Transmission Date: 20091009
  Serious: Yes (Death)
  Sender: FDA-Public Use
  Company Number: DE-JNJFOC-20090100736

PATIENT
  Sex: Male

DRUGS (6)
  1. TAVANIC 500 [Suspect]
     Indication: NASOPHARYNGITIS
     Route: 048
  2. TAVANIC 500 [Suspect]
     Indication: PYREXIA
     Dosage: FILM COATED TABLETS
     Route: 048
  3. CORTISONE [Suspect]
     Indication: DRUG USE FOR UNKNOWN INDICATION
     Route: 065
  4. MARCUMAR [Suspect]
     Indication: DRUG USE FOR UNKNOWN INDICATION
     Route: 065
  5. LYRICA [Suspect]
     Indication: MUSCLE SPASMS
     Dosage: AS NEEDED
     Route: 048
  6. UNKNOWN MEDICATIONS [Concomitant]
     Route: 065

REACTIONS (2)
  - COMPLETED SUICIDE [None]
  - PERSECUTORY DELUSION [None]
